FAERS Safety Report 12009197 (Version 1)
Quarter: 2016Q1

REPORT INFORMATION
  Report Type: Spontaneous
  Country: US (occurrence: None)
  Receive Date: 20160204
  Receipt Date: 20160204
  Transmission Date: 20160526
  Serious: Yes (Hospitalization)
  Sender: FDA-Public Use
  Company Number: None

PATIENT
  Age: 4 Year
  Sex: Female
  Weight: 24.1 kg

DRUGS (2)
  1. TAMIFLU [Suspect]
     Active Substance: OSELTAMIVIR PHOSPHATE
     Indication: INFLUENZA
     Route: 048
     Dates: start: 20160131, end: 20160202
  2. APAP [Concomitant]
     Active Substance: ACETAMINOPHEN

REACTIONS (3)
  - Gait disturbance [None]
  - Pain in extremity [None]
  - Upper respiratory tract infection [None]

NARRATIVE: CASE EVENT DATE: 20160202
